FAERS Safety Report 5416454-8 (Version None)
Quarter: 2007Q3

REPORT INFORMATION
  Report Type: 
  Country: None (occurrence: None)
  Receive Date: 20070814
  Receipt Date: 20070802
  Transmission Date: 20080115
  Serious: Yes (Death)
  Sender: FDA-Public Use
  Company Number: GXKR2007NL06705

PATIENT
  Age: 65 Year
  Sex: Female

DRUGS (1)
  1. HYDROXYCHLOROQUINE SULFATE [Suspect]

REACTIONS (8)
  - BACTERIAL CULTURE POSITIVE [None]
  - BETA HAEMOLYTIC STREPTOCOCCAL INFECTION [None]
  - GASTROINTESTINAL PERFORATION [None]
  - MULTI-ORGAN FAILURE [None]
  - SEPSIS [None]
  - STOMATITIS [None]
  - TOXIC EPIDERMAL NECROLYSIS [None]
  - WOUND INFECTION PSEUDOMONAS [None]
